FAERS Safety Report 25427396 (Version 1)
Quarter: 2025Q2

REPORT INFORMATION
  Report Type: Spontaneous
  Country: US (occurrence: US)
  Receive Date: 20250612
  Receipt Date: 20250612
  Transmission Date: 20250717
  Serious: Yes (Other)
  Sender: TEVA
  Company Number: US-TEVA-VS-3339411

PATIENT
  Age: 78 Year
  Sex: Female

DRUGS (4)
  1. ANASTROZOLE [Suspect]
     Active Substance: ANASTROZOLE
     Indication: Breast cancer female
     Route: 065
     Dates: end: 202204
  2. ANASTROZOLE [Suspect]
     Active Substance: ANASTROZOLE
     Indication: Breast cancer female
     Dosage: 7 YEARS OF ADJUVANT ANASTROZOLE (COMPLETED ?IN APRIL 2022)
     Route: 048
     Dates: start: 20240403
  3. PALBOCICLIB [Suspect]
     Active Substance: PALBOCICLIB
     Indication: Breast cancer female
     Dosage: TAKE ONE TABLET (100 MG) BY MOUTH ONCE DAILY WITH FOOD FOR 21 DAYS FOLLOWED BY 7 DAYS OFF ?TREATM...
     Route: 048
     Dates: start: 20250318, end: 2025
  4. PALBOCICLIB [Suspect]
     Active Substance: PALBOCICLIB
     Indication: Breast cancer female
     Dosage: TAKE ONE TABLET (75 MG) BY MOUTH ONCE DAILY WITH FOOD FOR 21 DAYS FOLLOWED BY 7 DAYS OFF TREATMEN...
     Route: 048
     Dates: start: 20250425, end: 2025

REACTIONS (3)
  - Pancytopenia [Not Recovered/Not Resolved]
  - Neck pain [Unknown]
  - Neutropenia [Unknown]

NARRATIVE: CASE EVENT DATE: 20250101
